FAERS Safety Report 23232383 (Version 2)
Quarter: 2023Q4

REPORT INFORMATION
  Report Type: Report from Study
  Country: NL (occurrence: NL)
  Receive Date: 20231128
  Receipt Date: 20231212
  Transmission Date: 20240110
  Serious: Yes (Hospitalization, Other)
  Sender: FDA-Public Use
  Company Number: NL-ABBVIE-5394852

PATIENT
  Age: 75 Year
  Sex: Female

DRUGS (9)
  1. CARBIDOPA\LEVODOPA [Suspect]
     Active Substance: CARBIDOPA\LEVODOPA
     Indication: Parkinson^s disease
     Dosage: MD:8.7ML; CD:4.5ML/H; ED:2.0ML; CND:2.5ML/H; REMAINS AT 24 HOURS
     Route: 050
     Dates: start: 20230807, end: 20230921
  2. CARBIDOPA\LEVODOPA [Suspect]
     Active Substance: CARBIDOPA\LEVODOPA
     Dosage: MD:7.7ML; CD:4.5ML/H; ED:2.0ML; END: 2.0 ML, CND: 2.5 ML/H, DURATION TEXT: REMAINS AT 16 HOURS
     Route: 050
     Dates: start: 20231205
  3. CARBIDOPA\LEVODOPA [Suspect]
     Active Substance: CARBIDOPA\LEVODOPA
     Dosage: MD:7.7ML; CD:4.5ML/H; ED:2.0ML; REMAINS AT 24 HOURS
     Route: 050
     Dates: start: 20231107, end: 20231205
  4. CARBIDOPA\LEVODOPA [Suspect]
     Active Substance: CARBIDOPA\LEVODOPA
     Route: 050
     Dates: start: 20220822
  5. CARBIDOPA\LEVODOPA [Suspect]
     Active Substance: CARBIDOPA\LEVODOPA
     Dosage: MD:8.7ML; CD:4.5ML/H; ED:2.0ML?DURATION TEXT: REMAINS AT 24 HOURS
     Route: 050
     Dates: start: 20230627, end: 20230807
  6. CARBIDOPA\LEVODOPA [Suspect]
     Active Substance: CARBIDOPA\LEVODOPA
     Dosage: MD:8.7ML; CD:4.5ML/H; ED:2.0ML; CND:2.5ML/H; END: 2.0 ML, REMAINS AT 24 HOURS
     Route: 050
     Dates: start: 20230921, end: 20231107
  7. CARBIDOPA\LEVODOPA [Suspect]
     Active Substance: CARBIDOPA\LEVODOPA
     Dosage: MD:9.2ML; CD:4.5ML/H; ED:2.0 ML; CND:2.3ML/H; END:2.0ML, REMAINS AT 24 HOURS
     Route: 050
     Dates: start: 20230517, end: 20230627
  8. OXAZEPAM [Concomitant]
     Active Substance: OXAZEPAM
     Indication: Sleep disorder
  9. CARBIDOPA\LEVODOPA [Concomitant]
     Active Substance: CARBIDOPA\LEVODOPA
     Indication: Parkinson^s disease
     Dosage: TIME INTERVAL: 0.16666667 DAYS: FORM STRENGTH- 250 MG
     Route: 048
     Dates: start: 2016

REACTIONS (16)
  - Suicidal ideation [Not Recovered/Not Resolved]
  - Neuropathy peripheral [Not Recovered/Not Resolved]
  - Dyskinesia [Recovering/Resolving]
  - Fatigue [Not Recovered/Not Resolved]
  - Muscle spasms [Not Recovered/Not Resolved]
  - Depressed mood [Not Recovered/Not Resolved]
  - On and off phenomenon [Not Recovered/Not Resolved]
  - Pain [Recovering/Resolving]
  - Hospitalisation [Recovered/Resolved]
  - Catheter placement [Unknown]
  - Pain [Recovering/Resolving]
  - Limb discomfort [Not Recovered/Not Resolved]
  - Decreased appetite [Recovering/Resolving]
  - Bowel movement irregularity [Not Recovered/Not Resolved]
  - Mastication disorder [Not Recovered/Not Resolved]
  - Spinal pain [Recovering/Resolving]

NARRATIVE: CASE EVENT DATE: 20231115
